FAERS Safety Report 5520841-7 (Version None)
Quarter: 2007Q4

REPORT INFORMATION
  Report Type: 
  Country: None (occurrence: None)
  Receive Date: 20071119
  Receipt Date: 20071115
  Transmission Date: 20080405
  Serious: Yes (Hospitalization)
  Sender: FDA-Public Use
  Company Number: A0694834A

PATIENT
  Age: 57 Year
  Sex: Female
  Weight: 68.4 kg

DRUGS (2)
  1. PAZOPANIB [Suspect]
     Dosage: 800MG PER DAY
     Route: 048
  2. LAPATINIB [Suspect]
     Dosage: 1500MG PER DAY
     Route: 048

REACTIONS (4)
  - CHILLS [None]
  - DYSURIA [None]
  - PYREXIA [None]
  - VOMITING [None]
